FAERS Safety Report 20343963 (Version 2)
Quarter: 2022Q1

REPORT INFORMATION
  Report Type: Spontaneous
  Country: GB (occurrence: GB)
  Receive Date: 20220118
  Receipt Date: 20220127
  Transmission Date: 20220423
  Serious: Yes (Congenital Anomaly, Other)
  Sender: FDA-Public Use
  Company Number: GB-MHRA-EYC 00270580

PATIENT
  Age: 24 Year
  Sex: Female

DRUGS (3)
  1. FLUOXETINE [Suspect]
     Active Substance: FLUOXETINE HYDROCHLORIDE
     Indication: Anxiety disorder
     Dosage: 40 MILLIGRAM, ONCE A DAY
     Route: 048
     Dates: start: 20210804
  2. ARIPIPRAZOLE [Suspect]
     Active Substance: ARIPIPRAZOLE
     Indication: Bipolar I disorder
     Dosage: 25 MILLIGRAM
     Route: 048
  3. PREGABALIN [Suspect]
     Active Substance: PREGABALIN
     Indication: Anxiety disorder
     Dosage: 150 MILLIGRAM
     Route: 048

REACTIONS (13)
  - Foetal vascular malperfusion [Unknown]
  - Abortion spontaneous [Unknown]
  - Amniotic cavity infection [Unknown]
  - Haemorrhage in pregnancy [Unknown]
  - Complication of pregnancy [Unknown]
  - Premature rupture of membranes [Unknown]
  - Haemosiderosis [Unknown]
  - Maternal exposure during pregnancy [Unknown]
  - Vaginal haemorrhage [Unknown]
  - Abdominal pain [Unknown]
  - Back pain [Unknown]
  - Bacterial vaginosis [Unknown]
  - Oligohydramnios [Unknown]

NARRATIVE: CASE EVENT DATE: 20210511
